FAERS Safety Report 9642106 (Version 1)
Quarter: 2013Q4

REPORT INFORMATION
  Report Type: Report from Study
  Country: BR (occurrence: BR)
  Receive Date: 20131023
  Receipt Date: 20131023
  Transmission Date: 20140711
  Serious: Yes (Other)
  Sender: FDA-Public Use
  Company Number: BR-ROCHE-1292380

PATIENT
  Sex: Female

DRUGS (1)
  1. XOLAIR [Suspect]
     Indication: DYSPNOEA
     Dosage: 2 OR 3 AMPULE EVERY 15 DAY
     Route: 065

REACTIONS (3)
  - Uterine leiomyoma [Recovered/Resolved]
  - Breast neoplasm [Unknown]
  - General physical health deterioration [Unknown]
